FAERS Safety Report 21838181 (Version 1)
Quarter: 2023Q1

REPORT INFORMATION
  Report Type: Spontaneous
  Country: US (occurrence: None)
  Receive Date: 20230106
  Receipt Date: 20230106
  Transmission Date: 20230418
  Serious: Yes (Hospitalization)
  Sender: FDA-Public Use
  Company Number: None

PATIENT
  Sex: Female

DRUGS (14)
  1. REPATHA [Suspect]
     Active Substance: EVOLOCUMAB
     Indication: Hyperlipidaemia
     Dosage: 140 MG/ML SUBCUTANEOUS??INJECT 1 PEN UNDER THE SKIN (SUBCUTANEOUS INJECTION) EVERY 14 DAYS
     Route: 058
     Dates: start: 20170511
  2. ALBUTEROL [Concomitant]
  3. ALLERGY TAB [Concomitant]
  4. ANORO ELLIPT [Concomitant]
  5. ARNUITY ELPT [Concomitant]
  6. BENZONATATE [Concomitant]
  7. CALCIUM 600 TAB -D [Concomitant]
  8. CARVEDILOL [Concomitant]
  9. CITALOPRAM [Concomitant]
     Active Substance: CITALOPRAM HYDROBROMIDE
  10. ELIQUIS [Concomitant]
     Active Substance: APIXABAN
  11. FELODIPINE [Concomitant]
  12. IRBESARTAN [Concomitant]
     Active Substance: IRBESARTAN
  13. MELATONIN [Concomitant]
     Active Substance: MELATONIN
  14. VITAMIN D3 [Concomitant]
     Active Substance: CHOLECALCIFEROL

REACTIONS (1)
  - Therapy interrupted [None]
